FAERS Safety Report 10633585 (Version 1)
Quarter: 2014Q4

REPORT INFORMATION
  Report Type: Spontaneous
  Country: US (occurrence: US)
  Receive Date: 20141205
  Receipt Date: 20141205
  Transmission Date: 20150529
  Serious: No
  Sender: FDA-Public Use
  Company Number: US-ABBVIE-14P-163-1274894-00

PATIENT
  Age: 39 Year
  Sex: Female
  Weight: 79.9 kg

DRUGS (6)
  1. AZITHROMYCIN [Suspect]
     Active Substance: AZITHROMYCIN ANHYDROUS
     Indication: CHRONIC SINUSITIS
     Dosage: FIRST DAY
     Route: 048
     Dates: start: 201406, end: 201406
  2. FLAGYL [Suspect]
     Active Substance: METRONIDAZOLE\METRONIDAZOLE HYDROCHLORIDE
     Indication: CHRONIC SINUSITIS
     Dates: start: 201406, end: 201406
  3. OMNICEF [Suspect]
     Active Substance: CEFDINIR
     Indication: CHRONIC SINUSITIS
     Dates: start: 201406, end: 201406
  4. AZITHROMYCIN [Suspect]
     Active Substance: AZITHROMYCIN ANHYDROUS
     Dosage: UNTIL COMPLETED
     Route: 048
     Dates: start: 201406, end: 201406
  5. OMNICEF [Suspect]
     Active Substance: CEFDINIR
     Dates: start: 201407, end: 201407
  6. PRENATAL VITAMINS [Concomitant]
     Active Substance: VITAMINS
     Indication: PRODUCT USED FOR UNKNOWN INDICATION

REACTIONS (6)
  - Infection [Unknown]
  - Pruritus [Unknown]
  - Insomnia [Unknown]
  - Drug hypersensitivity [Unknown]
  - Drug administration error [Unknown]
  - Palpitations [Unknown]

NARRATIVE: CASE EVENT DATE: 201406
